FAERS Safety Report 8165130-X (Version None)
Quarter: 2012Q1

REPORT INFORMATION
  Report Type: 
  Country: None (occurrence: None)
  Receive Date: 20120227
  Receipt Date: 20120221
  Transmission Date: 20120608
  Serious: Yes (Other)
  Sender: FDA-Public Use
  Company Number: US-PFIZER INC-2012022500

PATIENT
  Sex: Male
  Weight: 112.93 kg

DRUGS (6)
  1. NEURONTIN [Suspect]
     Indication: NERVE INJURY
     Dosage: 1200 MG, 3X/DAY
     Route: 048
     Dates: start: 20060101
  2. CLONIDINE [Concomitant]
     Indication: HYPERTENSION
     Dosage: UNK
  3. PAXIL [Concomitant]
     Indication: DEPRESSION
     Dosage: UNK
  4. VISTARIL [Concomitant]
     Indication: ANXIETY
     Dosage: UNK
  5. CLONAZEPAM [Concomitant]
     Indication: ANXIETY
     Dosage: UNK
  6. TRAMADOL [Concomitant]
     Indication: PAIN IN EXTREMITY
     Dosage: UNK

REACTIONS (1)
  - DIABETES MELLITUS [None]
